FAERS Safety Report 15863811 (Version 1)
Quarter: 2018Q4

REPORT INFORMATION
  Report Type: Spontaneous
  Country: US (occurrence: US)
  Receive Date: 20181231
  Receipt Date: 20181231
  Transmission Date: 20190205
  Serious: Yes (Hospitalization)
  Sender: FDA-Public Use
  Company Number: None

PATIENT
  Age: 88 Year
  Weight: 107 kg

DRUGS (1)
  1. WARFARIN [Suspect]
     Active Substance: WARFARIN
     Indication: ATRIAL FIBRILLATION
     Route: 048
     Dates: start: 20180731, end: 20180910

REACTIONS (5)
  - Haemoglobin decreased [None]
  - Asthenia [None]
  - Clostridium difficile infection [None]
  - Anticoagulation drug level above therapeutic [None]
  - Haematochezia [None]

NARRATIVE: CASE EVENT DATE: 20180913
